FAERS Safety Report 5893087-0 (Version None)
Quarter: 2008Q3

REPORT INFORMATION
  Report Type: 
  Country: None (occurrence: None)
  Receive Date: 20080923
  Receipt Date: 20080911
  Transmission Date: 20090109
  Serious: Yes (Hospitalization)
  Sender: FDA-Public Use
  Company Number: FR-ROCHE-586102

PATIENT
  Sex: Male
  Weight: 71 kg

DRUGS (3)
  1. PEGASYS [Suspect]
     Dosage: TEMPORARILY INTERRUPTED.
     Route: 058
     Dates: start: 20080212, end: 20080909
  2. RIBAVIRIN [Suspect]
     Dosage: TEMPORARILY INTERRUPTED.
     Route: 048
     Dates: start: 20080212, end: 20080909
  3. VX-950 [Suspect]
     Route: 048
     Dates: start: 20080212, end: 20080325

REACTIONS (1)
  - DEMYELINATING POLYNEUROPATHY [None]
